FAERS Safety Report 22232691 (Version 1)
Quarter: 2023Q2

REPORT INFORMATION
  Report Type: Other
  Country: US (occurrence: None)
  Receive Date: 20230420
  Receipt Date: 20230420
  Transmission Date: 20230721
  Serious: No
  Sender: FDA-Public Use
  Company Number: US-ROCHE-3110057

PATIENT
  Age: 73 Year
  Sex: Female

DRUGS (4)
  1. BEVACIZUMAB [Suspect]
     Active Substance: BEVACIZUMAB
     Indication: Hereditary haemorrhagic telangiectasia
     Route: 042
  2. BEVACIZUMAB [Suspect]
     Active Substance: BEVACIZUMAB
     Indication: Haemorrhage
  3. PAZOPANIB [Concomitant]
     Active Substance: PAZOPANIB
     Route: 048
  4. THALIDOMIDE [Concomitant]
     Active Substance: THALIDOMIDE

REACTIONS (2)
  - Off label use [Unknown]
  - No adverse event [Unknown]
